FAERS Safety Report 7529731-1 (Version None)
Quarter: 2011Q2

REPORT INFORMATION
  Report Type: 
  Country: None (occurrence: None)
  Receive Date: 20110607
  Receipt Date: 20110527
  Transmission Date: 20111010
  Serious: Yes (Hospitalization)
  Sender: FDA-Public Use
  Company Number: B0724398A

PATIENT
  Sex: Female

DRUGS (10)
  1. LEVOTHYROXINE SODIUM [Concomitant]
     Dosage: .05MG PER DAY
     Route: 048
     Dates: start: 20110303
  2. VITAMINES [Concomitant]
     Route: 048
  3. LAMICTAL [Suspect]
     Indication: BIPOLAR DISORDER
     Dosage: 200MG PER DAY
     Route: 048
     Dates: start: 20110303
  4. SEROQUEL [Concomitant]
     Dosage: 200MG PER DAY
     Route: 048
     Dates: start: 20110304, end: 20110307
  5. SEROQUEL [Concomitant]
     Dosage: 150MG PER DAY
     Route: 048
     Dates: start: 20110308
  6. ZOLPIDEM [Concomitant]
     Dosage: 6.25MG PER DAY
     Route: 048
     Dates: start: 20110306
  7. SEROQUEL [Concomitant]
     Indication: BIPOLAR DISORDER
     Dosage: 300MG PER DAY
     Route: 048
     Dates: start: 20110303
  8. SAGE [Concomitant]
     Route: 065
     Dates: start: 20110303
  9. BISOPROLOL FUMARATE [Concomitant]
     Dosage: 5MG PER DAY
     Route: 048
  10. TORSEMIDE [Concomitant]
     Dosage: 20MG PER DAY
     Route: 048
     Dates: start: 20110325

REACTIONS (3)
  - FALL [None]
  - DRUG INEFFECTIVE [None]
  - WOUND [None]
